FAERS Safety Report 15578557 (Version 1)
Quarter: 2018Q4

REPORT INFORMATION
  Report Type: Spontaneous
  Country: US (occurrence: US)
  Receive Date: 20181029
  Receipt Date: 20181029
  Transmission Date: 20190205
  Serious: Yes (Life-Threatening, Hospitalization)
  Sender: FDA-Public Use
  Company Number: None

PATIENT
  Age: 78 Year
  Sex: Male

DRUGS (1)
  1. APIXABAN [Suspect]
     Active Substance: APIXABAN
     Route: 048
     Dates: start: 20180308, end: 20180622

REACTIONS (4)
  - Headache [None]
  - Anaemia [None]
  - Gastrointestinal haemorrhage [None]
  - Diarrhoea [None]

NARRATIVE: CASE EVENT DATE: 20180330
